FAERS Safety Report 6673747-4 (Version None)
Quarter: 2010Q2

REPORT INFORMATION
  Report Type: 
  Country: None (occurrence: None)
  Receive Date: 20100407
  Receipt Date: 20100323
  Transmission Date: 20101027
  Serious: Yes (Death)
  Sender: FDA-Public Use
  Company Number: KADN20100086

PATIENT
  Age: 13 Month
  Sex: Female

DRUGS (2)
  1. MORPHINE [Suspect]
     Dosage: PER ORAL
     Route: 048
     Dates: end: 20080101
  2. NICOTINE [Concomitant]

REACTIONS (2)
  - ACCIDENTAL DRUG INTAKE BY CHILD [None]
  - DRUG TOXICITY [None]
